FAERS Safety Report 7367706-6 (Version None)
Quarter: 2011Q1

REPORT INFORMATION
  Report Type: 
  Country: None (occurrence: None)
  Receive Date: 20110311
  Receipt Date: 20110228
  Transmission Date: 20110831
  Serious: Yes (Other)
  Sender: FDA-Public Use
  Company Number: 028421

PATIENT
  Age: 25 Year
  Sex: Female

DRUGS (1)
  1. XYZAL [Suspect]
     Dosage: (5 MG QD ORAL)
     Route: 048
     Dates: start: 20110221, end: 20110221

REACTIONS (1)
  - COUGH [None]
